FAERS Safety Report 8317528 (Version 2)
Quarter: 2021Q3

REPORT INFORMATION
  Report Type: Report from Study
  Country: US (occurrence: US)
  Receive Date: 20120102
  Receipt Date: 20210715
  Transmission Date: 20211014
  Serious: Yes (Hospitalization, Other)
  Sender: FDA-Public Use
  Company Number: US-AMGEN-USASP2011068790

PATIENT
  Age: 56 Year
  Sex: Female

DRUGS (4)
  1. ENBREL [Suspect]
     Active Substance: ETANERCEPT
     Indication: PSORIATIC ARTHROPATHY
     Dosage: 25 MILLIGRAM, 2 TIMES/WK
     Route: 065
  2. ENBREL [Suspect]
     Active Substance: ETANERCEPT
     Dosage: 25 MILLIGRAM, 2 TIMES/WK
     Route: 065
  3. ENBREL [Suspect]
     Active Substance: ETANERCEPT
     Indication: RHEUMATOID ARTHRITIS
     Dosage: 50 MILLIGRAM, QWK
     Route: 065
     Dates: start: 20000701
  4. ENBREL [Suspect]
     Active Substance: ETANERCEPT
     Dosage: 25 MILLIGRAM, 2 TIMES/WK
     Route: 065

REACTIONS (8)
  - Streptococcal sepsis [Recovered/Resolved]
  - Arrhythmia [Recovered/Resolved]
  - Heart valve replacement [Recovered/Resolved]
  - Infection [Unknown]
  - Dyspnoea [Recovered/Resolved]
  - Cardiac murmur [Recovered/Resolved]
  - Injection site pain [Unknown]
  - Knee deformity [Not Recovered/Not Resolved]

NARRATIVE: CASE EVENT DATE: 2006
